FAERS Safety Report 20567590 (Version 1)
Quarter: 2022Q1

REPORT INFORMATION
  Report Type: Other
  Country: CA (occurrence: None)
  Receive Date: 20220308
  Receipt Date: 20220308
  Transmission Date: 20220423
  Serious: Yes (Hospitalization, Other)
  Sender: FDA-Public Use
  Company Number: CA-ROCHE-2824957

PATIENT
  Sex: Female
  Weight: 77.1 kg

DRUGS (8)
  1. AVASTIN [Suspect]
     Active Substance: BEVACIZUMAB
     Indication: Hereditary haemorrhagic telangiectasia
     Route: 042
  2. AVASTIN [Suspect]
     Active Substance: BEVACIZUMAB
     Dosage: DRUG DOSE FIRST ADMINISTERED IS 425 MG MILLIGRAM(S)?PREVIOUS INFUSION WAS ON 30/JUN/2021
     Route: 042
  3. AVASTIN [Suspect]
     Active Substance: BEVACIZUMAB
     Dosage: B8609B03 EXP DATE 06-APR-2023
     Route: 042
  4. ADVAIR HFA [Concomitant]
     Active Substance: FLUTICASONE PROPIONATE\SALMETEROL XINAFOATE
  5. MVASI [Concomitant]
     Active Substance: BEVACIZUMAB-AWWB
  6. VENOFER [Concomitant]
     Active Substance: IRON SUCROSE
  7. ZIRABEV [Concomitant]
     Active Substance: BEVACIZUMAB-BVZR
  8. COVID-19 VACCINE [Concomitant]
     Dosage: SECOND DOSE: 08/JUL/2021
     Dates: start: 20210708

REACTIONS (6)
  - Diverticulitis [Recovering/Resolving]
  - Oxygen saturation decreased [Unknown]
  - Off label use [Unknown]
  - Blood pressure systolic increased [Unknown]
  - COVID-19 [Unknown]
  - Pneumonia [Unknown]

NARRATIVE: CASE EVENT DATE: 20210101
